FAERS Safety Report 4388894-X (Version None)
Quarter: 2004Q2

REPORT INFORMATION
  Report Type: 
  Country: None (occurrence: None)
  Receive Date: 20040628
  Receipt Date: 20040621
  Transmission Date: 20050107
  Serious: No
  Sender: FDA-Public Use
  Company Number: TPA2004A00094

PATIENT
  Age: 70 Year
  Sex: Female
  Weight: 67.1324 kg

DRUGS (10)
  1. ACTOS [Suspect]
     Indication: DIABETES MELLITUS NON-INSULIN-DEPENDENT
     Dosage: 15 MG, 1 IN 1 D, PER ORAL
     Route: 048
  2. GLUCOVANCE (GLIBOMET) [Concomitant]
  3. PRILOSEC (OMEPRAZOLE) (20 MILLIGRAM) [Concomitant]
  4. CAPTOPRIL (CAPTOPRIL) (20 MILLIGRAM) [Concomitant]
  5. FUROSEMIDE (FUROSEMIDE) (20 MILLIGRAM) [Concomitant]
  6. PREMARIN (ESTROGENS CONJUGATED) (0.625 MILLIGRAM) [Concomitant]
  7. PREMPRO 14/14 [Concomitant]
  8. ALLEGRA [Concomitant]
  9. SPIRONOLACTONE [Concomitant]
  10. ASPIRIN [Concomitant]

REACTIONS (8)
  - BLOOD GLUCOSE DECREASED [None]
  - BLOOD GLUCOSE INCREASED [None]
  - COUGH [None]
  - GASTRIC POLYPS [None]
  - INSOMNIA [None]
  - NASOPHARYNGITIS [None]
  - TREATMENT NONCOMPLIANCE [None]
  - WEIGHT INCREASED [None]
